FAERS Safety Report 8381224-8 (Version None)
Quarter: 2012Q2

REPORT INFORMATION
  Report Type: 
  Country: None (occurrence: None)
  Receive Date: 20120523
  Receipt Date: 20120516
  Transmission Date: 20120825
  Serious: Yes (Other)
  Sender: FDA-Public Use
  Company Number: CN-ABBOTT-12P-035-0936477-00

PATIENT
  Age: 44 Year
  Sex: Female

DRUGS (3)
  1. DEPAKENE [Suspect]
     Indication: EPILEPSY
     Route: 048
     Dates: start: 20110601, end: 20120501
  2. DEPAKENE [Suspect]
     Route: 048
     Dates: start: 20120511
  3. DEPAKENE [Suspect]
     Dates: start: 20120501, end: 20120510

REACTIONS (2)
  - EPILEPSY [None]
  - PRODUCT COUNTERFEIT [None]
